FAERS Safety Report 17046635 (Version 1)
Quarter: 2019Q4

REPORT INFORMATION
  Report Type: Spontaneous
  Country: IT (occurrence: IT)
  Receive Date: 20191119
  Receipt Date: 20191119
  Transmission Date: 20200122
  Serious: Yes (Hospitalization, Other)
  Sender: FDA-Public Use
  Company Number: IT-AUROBINDO-AUR-APL-2019-073158

PATIENT
  Age: 37 Year
  Sex: Female

DRUGS (3)
  1. LORMETAZEPAM ORAL DROPS, SOLUTION [Suspect]
     Active Substance: LORMETAZEPAM
     Indication: ANXIETY
     Dosage: 10 MILLILITER, TOTAL
     Route: 048
  2. PAROXETINE FILM-COATED TABLET [Suspect]
     Active Substance: PAROXETINE
     Indication: DEPRESSION
     Dosage: 400 MILLIGRAM, TOTAL
     Route: 048
  3. ABILIFY [Suspect]
     Active Substance: ARIPIPRAZOLE
     Indication: PSYCHOTIC DISORDER
     Dosage: 100 MILLIGRAM, TOTAL
     Route: 048

REACTIONS (4)
  - Poisoning deliberate [Unknown]
  - Poisoning [Unknown]
  - Apraxia [Unknown]
  - Bradyphrenia [Unknown]

NARRATIVE: CASE EVENT DATE: 20190525
